FAERS Safety Report 11585598 (Version 1)
Quarter: 2015Q4

REPORT INFORMATION
  Report Type: Spontaneous
  Country: US (occurrence: US)
  Receive Date: 20151001
  Receipt Date: 20151001
  Transmission Date: 20160304
  Serious: Yes (Other)
  Sender: FDA-Public Use
  Company Number: ALCN2015US006129

PATIENT

DRUGS (1)
  1. DUREZOL [Suspect]
     Active Substance: DIFLUPREDNATE
     Indication: ANTIINFLAMMATORY THERAPY
     Dosage: 1 GTT, UNK
     Route: 047

REACTIONS (1)
  - Anterior chamber cell [Recovered/Resolved]
